FAERS Safety Report 5136196-6 (Version None)
Quarter: 2006Q4

REPORT INFORMATION
  Report Type: 
  Country: None (occurrence: None)
  Receive Date: 20061027
  Receipt Date: 20061012
  Transmission Date: 20070319
  Serious: Yes (Hospitalization)
  Sender: FDA-Public Use
  Company Number: TW-ROCHE-467177

PATIENT
  Age: 72 Year
  Sex: Female
  Weight: 46 kg

DRUGS (5)
  1. RIVOTRIL [Suspect]
     Indication: TREMOR
     Dosage: FREQUENCY REPORTED AS NIGHTLY (HS)
     Route: 048
     Dates: start: 20060724, end: 20061015
  2. MADOPAR [Suspect]
     Indication: PARKINSONISM
     Route: 048
     Dates: start: 20060724, end: 20061015
  3. MELOXICAM [Suspect]
     Indication: ANTIINFLAMMATORY THERAPY
     Dosage: TRADE NAME REPORTED AS ^MOPIK^
     Route: 048
     Dates: start: 20060829, end: 20061015
  4. NABUMETONE [Suspect]
     Indication: ANTIINFLAMMATORY THERAPY
     Dosage: TRADE NAME REPORTED AS ^TONTEC^
     Route: 048
     Dates: start: 20060912, end: 20061015
  5. ARTANE [Concomitant]
     Indication: PARKINSONISM
     Route: 048
     Dates: start: 20060724, end: 20061015

REACTIONS (1)
  - TOXIC EPIDERMAL NECROLYSIS [None]
